FAERS Safety Report 17827806 (Version 1)
Quarter: 2020Q2

REPORT INFORMATION
  Report Type: Spontaneous
  Country: CA (occurrence: CA)
  Receive Date: 20200527
  Receipt Date: 20200527
  Transmission Date: 20200714
  Serious: Yes (Hospitalization, Other)
  Sender: FDA-Public Use
  Company Number: CA-DRREDDYS-USA/CAN/20/0123496

PATIENT
  Age: 51 Year
  Sex: Male
  Weight: 99 kg

DRUGS (1)
  1. ATORVASTATIN [Suspect]
     Active Substance: ATORVASTATIN
     Indication: LIPIDS INCREASED
     Route: 048

REACTIONS (8)
  - Ketonuria [Unknown]
  - Blood ketone body increased [Unknown]
  - Diabetic ketoacidosis [Unknown]
  - Blood glucose increased [Unknown]
  - Confusional state [Unknown]
  - Off label use [Unknown]
  - Polydipsia [Unknown]
  - Polyuria [Unknown]
